FAERS Safety Report 8302550-4 (Version None)
Quarter: 2012Q2

REPORT INFORMATION
  Report Type: 
  Country: None (occurrence: None)
  Receive Date: 20120420
  Receipt Date: 20120410
  Transmission Date: 20120825
  Serious: Yes (Other)
  Sender: FDA-Public Use
  Company Number: JP-ROCHE-1044995

PATIENT
  Sex: Female
  Weight: 77 kg

DRUGS (15)
  1. NOVORAPID [Concomitant]
     Indication: TYPE 2 DIABETES MELLITUS
     Route: 058
     Dates: start: 20110517, end: 20110808
  2. FLUOROURACIL [Concomitant]
     Route: 041
     Dates: start: 20111013
  3. CANDESARTAN CILEXETIL [Concomitant]
     Indication: HYPERTENSION
     Route: 048
     Dates: start: 20110517
  4. OXALIPLATIN [Concomitant]
     Indication: COLON CANCER METASTATIC
     Route: 041
     Dates: start: 20110315, end: 20110929
  5. FLUOROURACIL [Concomitant]
     Route: 041
     Dates: start: 20110315, end: 20110901
  6. AVASTIN [Suspect]
     Route: 041
     Dates: start: 20111213, end: 20120110
  7. CRESTOR [Concomitant]
     Indication: HYPERLIPIDAEMIA
     Route: 048
     Dates: start: 20110913
  8. NOVORAPID [Concomitant]
     Route: 058
     Dates: start: 20110809
  9. FLUOROURACIL [Concomitant]
     Indication: COLON CANCER METASTATIC
     Route: 040
     Dates: start: 20110315, end: 20110929
  10. LANTUS [Concomitant]
     Indication: TYPE 2 DIABETES MELLITUS
     Route: 058
     Dates: start: 20110712
  11. AVASTIN [Suspect]
     Route: 041
     Dates: start: 20111013, end: 20111027
  12. FLUOROURACIL [Concomitant]
     Route: 040
     Dates: start: 20111013
  13. AVASTIN [Suspect]
     Indication: COLON CANCER METASTATIC
     Dosage: DOSAGE IS UNCERTAIN.
     Route: 041
     Dates: start: 20110315, end: 20110929
  14. ISOVORIN [Concomitant]
     Indication: COLON CANCER METASTATIC
     Route: 041
     Dates: start: 20110315, end: 20110929
  15. ISOVORIN [Concomitant]
     Route: 041
     Dates: start: 20111013

REACTIONS (5)
  - PNEUMOTHORAX [None]
  - VENOUS THROMBOSIS LIMB [None]
  - PULMONARY FISTULA [None]
  - IMPAIRED HEALING [None]
  - PULMONARY EMBOLISM [None]
